FAERS Safety Report 7345628-4 (Version None)
Quarter: 2011Q1

REPORT INFORMATION
  Report Type: 
  Country: None (occurrence: None)
  Receive Date: 20110310
  Receipt Date: 20110224
  Transmission Date: 20110831
  Serious: Yes (Death, Hospitalization)
  Sender: FDA-Public Use
  Company Number: A0916005A

PATIENT
  Sex: Female

DRUGS (5)
  1. LAPATINIB [Suspect]
     Dosage: 1250MG PER DAY
     Route: 048
     Dates: end: 20110228
  2. CAPECITABINE [Suspect]
     Dosage: 1500MGM2 TWICE PER DAY
     Route: 048
     Dates: end: 20110228
  3. DECADRON [Concomitant]
     Dosage: 12MG PER DAY
     Dates: start: 20101215
  4. SIMVASTATIN [Concomitant]
     Dates: start: 20101115
  5. TENORETIC [Concomitant]
     Dosage: 30MG PER DAY
     Dates: start: 20010101

REACTIONS (5)
  - FEBRILE NEUTROPENIA [None]
  - EJECTION FRACTION DECREASED [None]
  - ASTHENIA [None]
  - STOMATITIS [None]
  - DIARRHOEA [None]
